FAERS Safety Report 9689460 (Version 1)
Quarter: 2013Q4

REPORT INFORMATION
  Report Type: Spontaneous
  Country: FR (occurrence: FR)
  Receive Date: 20131114
  Receipt Date: 20131114
  Transmission Date: 20140711
  Serious: Yes (Other)
  Sender: FDA-Public Use
  Company Number: PHHY2013FR130058

PATIENT
  Age: 48 Year
  Sex: Male

DRUGS (9)
  1. TRILEPTAL / GP 47680 / TRI 476B [Suspect]
     Indication: EPILEPSY
     Dosage: 300 MG, BID
     Route: 048
     Dates: start: 20130731
  2. TRILEPTAL / GP 47680 / TRI 476B [Suspect]
     Dosage: 150 MG, BID
     Route: 048
  3. DEPAKINE CHRONO [Suspect]
     Indication: EPILEPSY
     Dosage: 2 DF, BID
     Route: 048
  4. ALEPSAL /00815401/ [Suspect]
     Indication: EPILEPSY
     Dosage: 100 MG, QD
     Route: 048
  5. URBANYL [Concomitant]
     Dosage: 10 MG, BID
  6. VIMPAT [Concomitant]
     Dosage: 200 MG, BID
  7. MODECATE [Concomitant]
     Dosage: UNK UKN, UNK
  8. INEGY [Concomitant]
     Dosage: UNK UKN, UNK
  9. LOXAPAC [Concomitant]
     Dosage: UNK UKN, UNK

REACTIONS (2)
  - Fall [Recovered/Resolved]
  - Somnolence [Recovered/Resolved]
